FAERS Safety Report 11819867 (Version 1)
Quarter: 2015Q4

REPORT INFORMATION
  Report Type: Spontaneous
  Country: CA (occurrence: None)
  Receive Date: 20151209
  Receipt Date: 20151209
  Transmission Date: 20160305
  Serious: Yes (Hospitalization)
  Sender: FDA-Public Use
  Company Number: None

PATIENT
  Age: 64 Year
  Sex: Male
  Weight: 75.1 kg

DRUGS (3)
  1. 5-FLUOROURACIL (5-FU) [Suspect]
     Active Substance: FLUOROURACIL
     Dates: end: 20150816
  2. LEUCOVORIN CALCIUM. [Suspect]
     Active Substance: LEUCOVORIN CALCIUM
     Dates: end: 20150814
  3. ELOXATIN [Concomitant]
     Active Substance: OXALIPLATIN
     Dates: end: 20150814

REACTIONS (3)
  - Dehydration [None]
  - Asthenia [None]
  - Cognitive disorder [None]

NARRATIVE: CASE EVENT DATE: 20151024
